FAERS Safety Report 4500652-1 (Version None)
Quarter: 2004Q4

REPORT INFORMATION
  Report Type: 
  Country: None (occurrence: None)
  Receive Date: 20041112
  Receipt Date: 20041112
  Transmission Date: 20050328
  Serious: No
  Sender: FDA-Public Use
  Company Number: None

PATIENT
  Sex: Male

DRUGS (2)
  1. REGENERATION TECHNOLOGIES [Suspect]
  2. DURICEF [Concomitant]

REACTIONS (5)
  - ARTHRITIS BACTERIAL [None]
  - IMPLANT SITE INFECTION [None]
  - LIGAMENT DISORDER [None]
  - POSTOPERATIVE INFECTION [None]
  - STAPHYLOCOCCAL INFECTION [None]
